FAERS Safety Report 8388743-9 (Version None)
Quarter: 2012Q2

REPORT INFORMATION
  Report Type: 
  Country: None (occurrence: None)
  Receive Date: 20120528
  Receipt Date: 20120514
  Transmission Date: 20120825
  Serious: Yes (Death, Other)
  Sender: FDA-Public Use
  Company Number: TW-BRISTOL-MYERS SQUIBB COMPANY-16590028

PATIENT
  Age: 49 Year
  Sex: Female

DRUGS (8)
  1. EPIRUBICIN [Suspect]
     Indication: BREAST CANCER
  2. CYTARABINE [Suspect]
     Indication: BREAST CANCER
  3. VINCRISTINE [Suspect]
     Indication: BREAST CANCER
  4. CYCLOPHOSPHAMIDE [Suspect]
     Indication: BREAST CANCER
  5. DOXORUBICIN HCL [Suspect]
     Indication: BREAST CANCER
  6. FLUOROURACIL [Suspect]
     Indication: BREAST CANCER
  7. METHOTREXATE [Suspect]
     Indication: BREAST CANCER
  8. DEXAMETHASONE [Suspect]
     Indication: BREAST CANCER

REACTIONS (2)
  - PNEUMONIA [None]
  - B PRECURSOR TYPE ACUTE LEUKAEMIA [None]
